FAERS Safety Report 5269803-8 (Version None)
Quarter: 2007Q1

REPORT INFORMATION
  Report Type: 
  Country: None (occurrence: None)
  Receive Date: 20061218
  Receipt Date: 20060913
  Transmission Date: 20070707
  Serious: Yes (Hospitalization)
  Sender: FDA-Public Use
  Company Number: US200609003100

PATIENT
  Age: 74 Year
  Sex: Male

DRUGS (4)
  1. HUMALOG [Suspect]
     Indication: DIABETES MELLITUS
     Dosage: AT LUNCH AT RESTAURANT
  2. NOVLOG (INSULIN ASPRAT) [Concomitant]
  3. AVANDIA [Concomitant]
  4. ROSIGLITAZONE MALEATE [Concomitant]

REACTIONS (3)
  - BLOOD GLUCOSE INCREASED [None]
  - FLUID RETENTION [None]
  - HYPERSENSITIVITY [None]
